FAERS Safety Report 9792974 (Version 2)
Quarter: 2014Q2

REPORT INFORMATION
  Report Type: Spontaneous
  Country: JP (occurrence: JP)
  Receive Date: 20140102
  Receipt Date: 20140404
  Transmission Date: 20141212
  Serious: Yes (Other)
  Sender: FDA-Public Use
  Company Number: JP-JNJFOC-20131216910

PATIENT
  Age: 8 Decade
  Sex: Female

DRUGS (2)
  1. DUROTEP MT [Suspect]
     Indication: CANCER PAIN
     Route: 062
  2. DUROTEP MT [Suspect]
     Indication: CANCER PAIN
     Route: 062

REACTIONS (3)
  - Depressed level of consciousness [Recovering/Resolving]
  - Hyperthermia [Recovering/Resolving]
  - Infection [Unknown]
